FAERS Safety Report 16573139 (Version 2)
Quarter: 2019Q3

REPORT INFORMATION
  Report Type: Spontaneous
  Country: GB (occurrence: GB)
  Receive Date: 20190715
  Receipt Date: 20190717
  Transmission Date: 20191004
  Serious: Yes (Other)
  Sender: FDA-Public Use
  Company Number: GB-PFIZER INC-2019291083

PATIENT
  Age: 31 Year
  Sex: Female

DRUGS (5)
  1. WARFARIN [Suspect]
     Active Substance: WARFARIN
     Indication: DEEP VEIN THROMBOSIS
     Dosage: UNK
     Route: 065
  2. DALTEPARIN SODIUM [Suspect]
     Active Substance: DALTEPARIN SODIUM
     Dosage: UNK,(MAINTAINED TO AN APTT OF 45-60 SECONDS FOR 72 HOURS)
     Route: 042
  3. WARFARIN [Suspect]
     Active Substance: WARFARIN
     Dosage: UNK(10.5 AND 5MG)
     Route: 065
  4. DALTEPARIN SODIUM [Suspect]
     Active Substance: DALTEPARIN SODIUM
     Indication: DEEP VEIN THROMBOSIS
     Dosage: 200 IU/KG, UNK
     Route: 065
  5. DALTEPARIN SODIUM [Suspect]
     Active Substance: DALTEPARIN SODIUM
     Dosage: UNK (RECOMMENCED 96 HOURS)
     Route: 042

REACTIONS (5)
  - Protein S decreased [Unknown]
  - International normalised ratio increased [Unknown]
  - Gangrene [Unknown]
  - Protein C decreased [Unknown]
  - Thrombocytosis [Unknown]
